FAERS Safety Report 25739339 (Version 1)
Quarter: 2025Q3

REPORT INFORMATION
  Report Type: Spontaneous
  Country: US (occurrence: US)
  Receive Date: 20250829
  Receipt Date: 20250829
  Transmission Date: 20251020
  Serious: No
  Sender: GERON CORP
  Company Number: US-GERON CORPORATION-US-GER-25-000158

PATIENT
  Age: 66 Year
  Sex: Female

DRUGS (2)
  1. RYTELO [Suspect]
     Active Substance: IMETELSTAT SODIUM
     Indication: Product used for unknown indication
     Dosage: 188 MILLIGRAM/KILOGRAM, 4W
     Route: 042
     Dates: start: 20250320, end: 20250522
  2. RYTELO [Suspect]
     Active Substance: IMETELSTAT SODIUM
     Dosage: 47 MILLIGRAM/KILOGRAM, 4W
     Route: 042
     Dates: start: 20250320, end: 20250522

REACTIONS (1)
  - Product dose omission issue [Not Recovered/Not Resolved]

NARRATIVE: CASE EVENT DATE: 20250601
